FAERS Safety Report 13858332 (Version 19)
Quarter: 2019Q2

REPORT INFORMATION
  Report Type: Report from Study
  Country: US (occurrence: US)
  Receive Date: 20170811
  Receipt Date: 20190626
  Transmission Date: 20190711
  Serious: Yes (Hospitalization)
  Sender: FDA-Public Use
  Company Number: US-SA-2017SA145768

PATIENT
  Age: 35 Year
  Sex: Female
  Weight: 61.2 kg

DRUGS (9)
  1. NEURONTIN [Concomitant]
     Active Substance: GABAPENTIN
     Indication: NEURALGIA
     Dosage: 300 MG,UNK
     Route: 048
     Dates: start: 2009, end: 201706
  2. ALEMTUZUMAB [Suspect]
     Active Substance: ALEMTUZUMAB
     Dosage: 12 MG
     Route: 041
     Dates: start: 20180602, end: 20180604
  3. KLONOPIN [Concomitant]
     Active Substance: CLONAZEPAM
     Indication: MIXED ANXIETY AND DEPRESSIVE DISORDER
     Dosage: .5 MG,UNK
     Route: 048
     Dates: start: 20130305, end: 201711
  4. FLEXERIL [Concomitant]
     Active Substance: CYCLOBENZAPRINE HYDROCHLORIDE
     Indication: MUSCLE SPASTICITY
     Dosage: 10 MG,UNK
     Route: 048
     Dates: start: 20130305, end: 201711
  5. BACLOFEN. [Concomitant]
     Active Substance: BACLOFEN
     Indication: MUSCLE SPASTICITY
     Dosage: 20 MG,UNK
     Route: 048
     Dates: start: 20101029, end: 201711
  6. NEURONTIN [Concomitant]
     Active Substance: GABAPENTIN
     Indication: MUSCLE SPASTICITY
  7. ALEMTUZUMAB [Suspect]
     Active Substance: ALEMTUZUMAB
     Indication: MULTIPLE SCLEROSIS RELAPSE
     Dosage: UNK UNK,QD
     Route: 041
     Dates: start: 20170530, end: 20170602
  8. ALEMTUZUMAB [Suspect]
     Active Substance: ALEMTUZUMAB
     Dosage: UNK UNK,QD
     Route: 041
     Dates: start: 20170605, end: 20170605
  9. VITAMIN D [ERGOCALCIFEROL] [Concomitant]
     Active Substance: ERGOCALCIFEROL
     Indication: VITAMIN D DEFICIENCY
     Dosage: 2000 IU,UNK
     Route: 048
     Dates: start: 2011

REACTIONS (8)
  - Thrombocytopenia [Recovered/Resolved]
  - Anaemia [Recovered/Resolved]
  - Protein-losing gastroenteropathy [Recovered/Resolved]
  - Pancytopenia [Recovered/Resolved]
  - Pneumonia legionella [Recovered/Resolved]
  - Gastroenteritis [Recovered/Resolved]
  - Systemic inflammatory response syndrome [Recovered/Resolved]
  - Euthyroid sick syndrome [Recovered/Resolved]

NARRATIVE: CASE EVENT DATE: 20170619
